FAERS Safety Report 9226516 (Version 2)
Quarter: 2016Q2

REPORT INFORMATION
  Report Type: Report from Study
  Country: US (occurrence: US)
  Receive Date: 20130412
  Receipt Date: 20160609
  Transmission Date: 20160815
  Serious: Yes (Other)
  Sender: FDA-Public Use
  Company Number: US-RANBAXY-2013US-67313

PATIENT
  Age: 17 Year
  Sex: Male

DRUGS (4)
  1. FLUOXETINE [Suspect]
     Active Substance: FLUOXETINE HYDROCHLORIDE
     Indication: OBSESSIVE-COMPULSIVE DISORDER
     Dosage: 20 MG, QD (TAKEN ALONGWITH A DOSE OF 40 MG TO ACHIEVE A TOTAL DOSE OF 60 MG/DAILY)
     Route: 065
  2. FLUOXETINE [Suspect]
     Active Substance: FLUOXETINE HYDROCHLORIDE
     Indication: OBSESSIVE-COMPULSIVE DISORDER
     Dosage: 40 MG, QD
     Route: 065
  3. FLUOXETINE [Suspect]
     Active Substance: FLUOXETINE HYDROCHLORIDE
     Indication: OBSESSIVE-COMPULSIVE DISORDER
     Dosage: 40 MG, QD
     Route: 065
  4. FLUOXETINE [Suspect]
     Active Substance: FLUOXETINE HYDROCHLORIDE
     Indication: OBSESSIVE-COMPULSIVE DISORDER
     Dosage: 40MG FLUOXETINE WAS TAKEN ALONGWITH A 20 MG FLUOXETINE TABLET TO ACHIEVE A TOTAL DOSE OF 60 MG/DAILY
     Route: 065

REACTIONS (4)
  - Condition aggravated [Unknown]
  - Intentional product use issue [Unknown]
  - Suicidal ideation [Recovered/Resolved]
  - Agitation [Recovered/Resolved]
